FAERS Safety Report 5328895-8 (Version None)
Quarter: 2007Q2

REPORT INFORMATION
  Report Type: 
  Country: None (occurrence: None)
  Receive Date: 20070518
  Receipt Date: 20070509
  Transmission Date: 20071010
  Serious: No
  Sender: FDA-Public Use
  Company Number: DE-BAXTER-2007BH004222

PATIENT
  Sex: Male

DRUGS (2)
  1. ADVATE [Suspect]
     Indication: HAEMOPHILIA
     Dosage: DOSE UNIT:UNKNOWN
     Route: 065
     Dates: start: 20070202, end: 20070202
  2. ADVATE [Suspect]
     Dosage: DOSE UNIT:UNKNOWN
     Route: 065
     Dates: start: 20070323, end: 20070323

REACTIONS (1)
  - LIVER FUNCTION TEST ABNORMAL [None]
